FAERS Safety Report 10616181 (Version 2)
Quarter: 2015Q1

REPORT INFORMATION
  Report Type: Spontaneous
  Country: US (occurrence: US)
  Receive Date: 20141201
  Receipt Date: 20150210
  Transmission Date: 20150720
  Serious: Yes (Hospitalization)
  Sender: FDA-Public Use
  Company Number: US-SA-2014SA163306

PATIENT
  Age: 31 Year
  Sex: Female
  Weight: 65.3 kg

DRUGS (16)
  1. APIDRA [Suspect]
     Active Substance: INSULIN GLULISINE
     Indication: TYPE 1 DIABETES MELLITUS
     Dosage: DOSE: 6 X DAY DOSE:12 UNIT(S)
     Route: 065
  2. CORTEF /CAN/ [Concomitant]
     Dosage: 20 MG AM/10 MG PM
  3. SYNTHROID [Concomitant]
     Active Substance: LEVOTHYROXINE SODIUM
  4. LANTUS SOLOSTAR [Suspect]
     Active Substance: INSULIN GLARGINE
     Indication: TYPE 1 DIABETES MELLITUS
     Dosage: DOSE:12 UNIT(S)
     Route: 065
  5. APIDRA SOLOSTAR [Suspect]
     Active Substance: INSULIN GLULISINE
     Indication: TYPE 1 DIABETES MELLITUS
     Dosage: DOSE: 6 X DAY
     Route: 065
  6. SOLOSTAR [Concomitant]
     Active Substance: DEVICE
     Dates: start: 2012
  7. BUMEX [Concomitant]
     Active Substance: BUMETANIDE
  8. NUTROPIN [Concomitant]
     Active Substance: SOMATROPIN
  9. ZOFRAN [Concomitant]
     Active Substance: ONDANSETRON HYDROCHLORIDE
  10. LANTUS [Suspect]
     Active Substance: INSULIN GLARGINE
     Indication: TYPE 1 DIABETES MELLITUS
     Dosage: DOSE:25 UNIT(S)
     Route: 065
  11. SOLOSTAR [Concomitant]
     Active Substance: DEVICE
  12. FLORINEF ACETATE [Concomitant]
     Active Substance: FLUDROCORTISONE ACETATE
  13. VITAMIN D [Concomitant]
     Active Substance: CHOLECALCIFEROL
     Dosage: DOSE:2000 UNIT(S)
  14. LANTUS SOLOSTAR [Suspect]
     Active Substance: INSULIN GLARGINE
     Indication: TYPE 1 DIABETES MELLITUS
     Dosage: DOSE:25 UNIT(S)
     Route: 065
     Dates: start: 2012
  15. APIDRA SOLOSTAR [Suspect]
     Active Substance: INSULIN GLULISINE
     Indication: TYPE 1 DIABETES MELLITUS
     Route: 065
  16. CALCITRIOL. [Concomitant]
     Active Substance: CALCITRIOL

REACTIONS (4)
  - Hospitalisation [Unknown]
  - Renal disorder [Unknown]
  - Hyperkalaemia [Unknown]
  - Hyperglycaemia [Unknown]
